FAERS Safety Report 18635922 (Version 5)
Quarter: 2021Q2

REPORT INFORMATION
  Report Type: Report from Study
  Country: US (occurrence: US)
  Receive Date: 20201218
  Receipt Date: 20210608
  Transmission Date: 20210717
  Serious: No
  Sender: FDA-Public Use
  Company Number: NVSC2020US329279

PATIENT
  Age: 12 Year
  Sex: Male

DRUGS (2)
  1. OMNITROPE [Suspect]
     Active Substance: SOMATROPIN
     Indication: SHORT STATURE
     Dosage: 2 MG, QD
     Route: 065
     Dates: start: 20201209, end: 20201209
  2. OMNITROPE [Suspect]
     Active Substance: SOMATROPIN
     Dosage: UNK (OTHER DOSAGE [E.G. 24/26 MG,1.6X10 8 CAR?POSITIVE VIABLE T CELLS OR OTHER])
     Route: 065

REACTIONS (2)
  - Injection site haemorrhage [Unknown]
  - Injection site pain [Unknown]

NARRATIVE: CASE EVENT DATE: 20201209
